FAERS Safety Report 7719294-X (Version None)
Quarter: 2011Q3

REPORT INFORMATION
  Report Type: 
  Country: None (occurrence: None)
  Receive Date: 20110830
  Receipt Date: 20110820
  Transmission Date: 20111222
  Serious: Yes (Death, Hospitalization)
  Sender: FDA-Public Use
  Company Number: US-JNJFOC-20110303388

PATIENT
  Sex: Female
  Weight: 42.64 kg

DRUGS (9)
  1. MERCAPTOPURINE [Concomitant]
     Indication: COLITIS ULCERATIVE
     Dates: start: 20110116
  2. REMICADE [Suspect]
     Route: 042
     Dates: start: 20101213
  3. STEROIDS NOS [Concomitant]
     Indication: CROHN'S DISEASE
     Route: 065
  4. MERCAPTOPURINE [Concomitant]
     Indication: CROHN'S DISEASE
     Dates: start: 20110116
  5. REMICADE [Suspect]
     Route: 042
     Dates: start: 20101213
  6. REMICADE [Suspect]
     Indication: CROHN'S DISEASE
     Route: 042
     Dates: start: 20110114
  7. REMICADE [Suspect]
     Indication: COLITIS ULCERATIVE
     Route: 042
     Dates: start: 20110114
  8. REMICADE [Suspect]
     Dosage: RECEIVED 3 OR 4 INFUSIONS
     Route: 042
     Dates: start: 20101201
  9. REMICADE [Suspect]
     Dosage: RECEIVED 3 OR 4 INFUSIONS
     Route: 042
     Dates: start: 20101201

REACTIONS (5)
  - ANTIBIOTIC RESISTANT STAPHYLOCOCCUS TEST [None]
  - ASPERGILLOSIS [None]
  - CEREBROVASCULAR ACCIDENT [None]
  - CYTOMEGALOVIRUS INFECTION [None]
  - LARGE INTESTINE PERFORATION [None]
